FAERS Safety Report 7240893-6 (Version None)
Quarter: 2011Q1

REPORT INFORMATION
  Report Type: 
  Country: None (occurrence: None)
  Receive Date: 20110124
  Receipt Date: 20110110
  Transmission Date: 20110831
  Serious: Yes (Other)
  Sender: FDA-Public Use
  Company Number: KR-CELGENEUS-286-20785-11010811

PATIENT
  Age: 63 Year
  Sex: Female

DRUGS (2)
  1. THALIDOMIDE [Suspect]
     Indication: MULTIPLE MYELOMA
     Route: 048
     Dates: start: 20060701, end: 20070101
  2. THALIDOMIDE [Suspect]
     Route: 048
     Dates: start: 20070201, end: 20070101

REACTIONS (1)
  - INTERSTITIAL LUNG DISEASE [None]
